FAERS Safety Report 14163270 (Version 2)
Quarter: 2018Q1

REPORT INFORMATION
  Report Type: Report from Study
  Country: US (occurrence: US)
  Receive Date: 20171106
  Receipt Date: 20180305
  Transmission Date: 20180508
  Serious: Yes (Other)
  Sender: FDA-Public Use
  Company Number: US-ROCHE-1930364

PATIENT

DRUGS (10)
  1. TENECTEPLASE [Suspect]
     Active Substance: TENECTEPLASE
     Route: 065
  2. TENECTEPLASE [Suspect]
     Active Substance: TENECTEPLASE
     Route: 065
  3. HEPARIN [Concomitant]
     Active Substance: HEPARIN SODIUM
     Dosage: 5000 U BOLUS.
     Route: 042
  4. TENECTEPLASE [Suspect]
     Active Substance: TENECTEPLASE
     Route: 065
  5. TENECTEPLASE [Suspect]
     Active Substance: TENECTEPLASE
     Indication: ACUTE MYOCARDIAL INFARCTION
     Route: 065
  6. TENECTEPLASE [Suspect]
     Active Substance: TENECTEPLASE
     Route: 065
  7. TENECTEPLASE [Suspect]
     Active Substance: TENECTEPLASE
     Route: 065
  8. TENECTEPLASE [Suspect]
     Active Substance: TENECTEPLASE
     Route: 065
  9. HEPARIN [Concomitant]
     Active Substance: HEPARIN SODIUM
     Dosage: 1000 U/HR INFUSION FOR 48 TO 72 HOURS
     Route: 042
  10. TENECTEPLASE [Suspect]
     Active Substance: TENECTEPLASE
     Route: 065

REACTIONS (6)
  - Post procedural haemorrhage [Unknown]
  - Myocardial infarction [Unknown]
  - Cardiogenic shock [Unknown]
  - Cerebrovascular accident [Unknown]
  - Catheter site haemorrhage [Unknown]
  - Pulmonary oedema [Unknown]
